FAERS Safety Report 6614440-3 (Version None)
Quarter: 2010Q1

REPORT INFORMATION
  Report Type: 
  Country: None (occurrence: None)
  Receive Date: 20100303
  Receipt Date: 20100303
  Transmission Date: 20100710
  Serious: Yes (Life-Threatening, Hospitalization)
  Sender: FDA-Public Use
  Company Number: None

PATIENT
  Age: 66 Year
  Sex: Male

DRUGS (1)
  1. NAFCILLIN [Suspect]
     Dosage: 2 GM QID IV
     Route: 042
     Dates: start: 20091124, end: 20091205

REACTIONS (1)
  - TUBULOINTERSTITIAL NEPHRITIS [None]
